FAERS Safety Report 4334741-1 (Version None)
Quarter: 2004Q2

REPORT INFORMATION
  Report Type: 
  Country: None (occurrence: None)
  Receive Date: 20040405
  Receipt Date: 20040323
  Transmission Date: 20050107
  Serious: Yes (Death)
  Sender: FDA-Public Use
  Company Number: US-JNJFOC-20040305350

PATIENT
  Age: 34 Year
  Sex: Male
  Weight: 134.2647 kg

DRUGS (3)
  1. DURAGESIC [Suspect]
     Indication: PAIN
     Dosage: 25 UG/HR TRANSDERMAL
     Route: 062
  2. PSYCHIATRIC MEDICATION (ANTIPSYCHOTICS) [Concomitant]
  3. VICODIN [Concomitant]

REACTIONS (4)
  - ACCIDENT [None]
  - LOSS OF CONSCIOUSNESS [None]
  - OVERDOSE [None]
  - SOMNOLENCE [None]
